FAERS Safety Report 5294641-X (Version None)
Quarter: 2007Q2

REPORT INFORMATION
  Report Type: 
  Country: None (occurrence: None)
  Receive Date: 20070412
  Receipt Date: 20070403
  Transmission Date: 20071010
  Serious: Yes (Disabling)
  Sender: FDA-Public Use
  Company Number: 001#3#2007-00188

PATIENT
  Age: 42 Year
  Sex: Female

DRUGS (2)
  1. NARAMIG [Suspect]
     Indication: MIGRAINE
     Dosage: 2.5MG PER DAY
     Route: 048
     Dates: start: 20040315, end: 20070108
  2. PARACETAMOL [Concomitant]
     Indication: MIGRAINE
     Route: 065

REACTIONS (2)
  - SUDDEN HEARING LOSS [None]
  - TINNITUS [None]
